FAERS Safety Report 18985704 (Version 1)
Quarter: 2021Q1

REPORT INFORMATION
  Report Type: Spontaneous
  Country: US (occurrence: US)
  Receive Date: 20210309
  Receipt Date: 20210309
  Transmission Date: 20210420
  Serious: No
  Sender: FDA-Public Use
  Company Number: US-B.I. PHARMACEUTICALS,INC./RIDGEFIELD-2021-BI-088761

PATIENT
  Age: 86 Year
  Sex: Female

DRUGS (3)
  1. GLUCOTROL [Concomitant]
     Active Substance: GLIPIZIDE
     Indication: TYPE 2 DIABETES MELLITUS
     Dosage: 10MG BID
  2. JARDIANCE [Suspect]
     Active Substance: EMPAGLIFLOZIN
     Indication: TYPE 2 DIABETES MELLITUS
     Dosage: 25MG DAILY
     Dates: start: 20210209
  3. LIPITOR [Concomitant]
     Active Substance: ATORVASTATIN CALCIUM
     Indication: BLOOD CHOLESTEROL INCREASED

REACTIONS (3)
  - Urinary tract infection [Not Recovered/Not Resolved]
  - Vulvovaginal mycotic infection [Not Recovered/Not Resolved]
  - Blood glucose increased [Unknown]

NARRATIVE: CASE EVENT DATE: 20210225
